FAERS Safety Report 19246415 (Version 1)
Quarter: 2021Q2

REPORT INFORMATION
  Report Type: Spontaneous
  Country: US (occurrence: US)
  Receive Date: 20210512
  Receipt Date: 20210512
  Transmission Date: 20210717
  Serious: No
  Sender: FDA-Public Use
  Company Number: None

PATIENT
  Age: 65 Year
  Sex: Male

DRUGS (1)
  1. METOCLOPRAMIDE (METOCLOPRAMIDE HCL 10MG TAB) [Suspect]
     Active Substance: METOCLOPRAMIDE HYDROCHLORIDE
     Indication: IMPAIRED GASTRIC EMPTYING
     Route: 048
     Dates: start: 20201104, end: 20210329

REACTIONS (7)
  - Hypokalaemia [None]
  - Dizziness [None]
  - Nausea [None]
  - Parkinsonism [None]
  - Aspartate aminotransferase increased [None]
  - Alanine aminotransferase increased [None]
  - Tardive dyskinesia [None]

NARRATIVE: CASE EVENT DATE: 20210325
